FAERS Safety Report 7660166-7 (Version None)
Quarter: 2011Q3

REPORT INFORMATION
  Report Type: 
  Country: None (occurrence: None)
  Receive Date: 20110805
  Receipt Date: 20110729
  Transmission Date: 20111222
  Serious: Yes (Hospitalization)
  Sender: FDA-Public Use
  Company Number: PHHY2011AU68847

PATIENT
  Sex: Female

DRUGS (1)
  1. CLOZAPINE [Suspect]
     Dosage: 250 MG
     Dates: start: 20110711, end: 20110701

REACTIONS (2)
  - TROPONIN INCREASED [None]
  - CARDIAC DISORDER [None]
